FAERS Safety Report 9508829 (Version 3)
Quarter: 2014Q1

REPORT INFORMATION
  Report Type: Spontaneous
  Country: DE (occurrence: DE)
  Receive Date: 20130909
  Receipt Date: 20140129
  Transmission Date: 20141002
  Serious: Yes (Death, Life-Threatening, Hospitalization)
  Sender: FDA-Public Use
  Company Number: DE-BRACCO-001472

PATIENT
  Age: 25 Year
  Sex: Male
  Weight: 109 kg

DRUGS (1)
  1. MULTIHANCE [Suspect]
     Indication: NUCLEAR MAGNETIC RESONANCE IMAGING BRAIN
     Route: 042
     Dates: start: 20130819, end: 20130819

REACTIONS (2)
  - Anaphylactic shock [Fatal]
  - Status asthmaticus [Unknown]
